FAERS Safety Report 14946544 (Version 3)
Quarter: 2018Q2

REPORT INFORMATION
  Report Type: Spontaneous
  Country: FR (occurrence: FR)
  Receive Date: 20180529
  Receipt Date: 20180530
  Transmission Date: 20180711
  Serious: Yes (Other)
  Sender: FDA-Public Use
  Company Number: FR-TEVA-2018-FR-898838

PATIENT
  Age: 50 Year
  Sex: Female
  Weight: 63 kg

DRUGS (1)
  1. COTRIMOXAZOLE [Suspect]
     Active Substance: SULFAMETHOXAZOLE\TRIMETHOPRIM
     Indication: URINARY TRACT INFECTION
     Dosage: 3 DOSAGE FORMS DAILY;
     Route: 048
     Dates: start: 20180120, end: 20180121

REACTIONS (10)
  - Generalised erythema [Recovering/Resolving]
  - Paraesthesia [Recovering/Resolving]
  - Lacrimation increased [Recovered/Resolved]
  - Pyrexia [Recovering/Resolving]
  - Pain [Recovering/Resolving]
  - Hypotension [Recovering/Resolving]
  - Dizziness [Recovering/Resolving]
  - Dysgeusia [Recovering/Resolving]
  - Tremor [Recovering/Resolving]
  - Vomiting [Recovered/Resolved]

NARRATIVE: CASE EVENT DATE: 20180120
